FAERS Safety Report 8117225-4 (Version None)
Quarter: 2012Q1

REPORT INFORMATION
  Report Type: 
  Country: None (occurrence: None)
  Receive Date: 20120206
  Receipt Date: 20120117
  Transmission Date: 20120608
  Serious: Yes (Life-Threatening, Hospitalization)
  Sender: FDA-Public Use
  Company Number: FR-PFIZER INC-K200901521

PATIENT
  Age: 42 Year
  Sex: Male
  Weight: 82 kg

DRUGS (7)
  1. RAMIPRIL [Suspect]
     Dosage: 10 MG, UNK
     Route: 048
     Dates: start: 20070318, end: 20081024
  2. BISOPROLOL FUMARATE [Concomitant]
     Dosage: UNK MG, UNK
     Dates: start: 20070318
  3. PLAVIX [Concomitant]
     Dosage: UNK
     Dates: start: 20070318, end: 20081024
  4. BISOPROLOL FUMARATE [Concomitant]
     Dosage: UNK
     Dates: start: 19850101
  5. ASPIRIN [Concomitant]
     Dosage: UNK MG, UNK
     Dates: start: 20070318
  6. IRBESARTAN [Concomitant]
     Dosage: UNK MG, UNK
     Route: 048
     Dates: start: 20070301
  7. ATORVASTATIN [Suspect]
     Indication: DYSLIPIDAEMIA
     Dosage: 40 MG, UNK
     Route: 048
     Dates: start: 20070318, end: 20081024

REACTIONS (25)
  - TENSION [None]
  - WOUND DEHISCENCE [None]
  - STAPHYLOCOCCAL INFECTION [None]
  - DEHYDRATION [None]
  - WEIGHT DECREASED [None]
  - SHOCK HAEMORRHAGIC [None]
  - PAIN [None]
  - CARDIAC ANEURYSM [None]
  - PYELONEPHRITIS [None]
  - BRADYCARDIA [None]
  - PANCREATIC CYST [None]
  - HYPERLIPASAEMIA [None]
  - BLOOD ALBUMIN DECREASED [None]
  - PANCREATITIS NECROTISING [None]
  - FISTULA [None]
  - TOXIC SHOCK SYNDROME [None]
  - SUBDIAPHRAGMATIC ABSCESS [None]
  - HYPOGLYCAEMIA [None]
  - NUTRITIONAL CONDITION ABNORMAL [None]
  - STEATORRHOEA [None]
  - MULTI-ORGAN FAILURE [None]
  - LARGE INTESTINE PERFORATION [None]
  - RENAL COLIC [None]
  - SEPTIC SHOCK [None]
  - PANCREATITIS ACUTE [None]
